FAERS Safety Report 21487192 (Version 1)
Quarter: 2022Q4

REPORT INFORMATION
  Report Type: Spontaneous
  Country: US (occurrence: US)
  Receive Date: 20221020
  Receipt Date: 20221020
  Transmission Date: 20230112
  Serious: Yes (Other)
  Sender: FDA-Public Use
  Company Number: US-PFIZER INC-202201222996

PATIENT

DRUGS (2)
  1. METRONIDAZOLE [Interacting]
     Active Substance: METRONIDAZOLE
     Dosage: UNK
  2. LITHIUM [Interacting]
     Active Substance: LITHIUM
     Dosage: UNK

REACTIONS (2)
  - Drug interaction [Unknown]
  - Nephropathy toxic [Unknown]
